FAERS Safety Report 13065471 (Version 1)
Quarter: 2016Q4

REPORT INFORMATION
  Report Type: Spontaneous
  Country: NL (occurrence: NL)
  Receive Date: 20161227
  Receipt Date: 20161227
  Transmission Date: 20170207
  Serious: Yes (Life-Threatening, Hospitalization, Other)
  Sender: FDA-Public Use
  Company Number: NL-BAYER-2016-240781

PATIENT
  Age: 33 Year
  Sex: Female
  Weight: 53 kg

DRUGS (3)
  1. EUTHYROX [Concomitant]
     Active Substance: LEVOTHYROXINE SODIUM
     Dosage: 1 DF, QD
     Route: 048
     Dates: start: 19830821
  2. MIRENA [Suspect]
     Active Substance: LEVONORGESTREL
     Indication: CONTRACEPTION
     Dosage: 20 MCG/24HR, CONT
     Route: 015
     Dates: start: 20160819, end: 20160911
  3. MIRENA [Suspect]
     Active Substance: LEVONORGESTREL

REACTIONS (5)
  - Vomiting [Unknown]
  - Tubo-ovarian abscess [Recovering/Resolving]
  - Pyrexia [Unknown]
  - Abdominal pain lower [Recovering/Resolving]
  - Syncope [Unknown]

NARRATIVE: CASE EVENT DATE: 201609
